FAERS Safety Report 11866166 (Version 3)
Quarter: 2018Q3

REPORT INFORMATION
  Report Type: Report from Study
  Country: US (occurrence: US)
  Receive Date: 20151223
  Receipt Date: 20180723
  Transmission Date: 20181010
  Serious: No
  Sender: FDA-Public Use
  Company Number: US-EXELIXIS-CABO-15005757

PATIENT
  Sex: Female

DRUGS (4)
  1. COMETRIQ [Suspect]
     Active Substance: CABOZANTINIB S-MALATE
     Dosage: 120 MG, QD
     Route: 048
     Dates: start: 20171002
  2. COMETRIQ [Suspect]
     Active Substance: CABOZANTINIB S-MALATE
     Indication: THYROID CANCER
     Dosage: 140 MG, QD
     Route: 048
     Dates: start: 201505, end: 201507
  3. COMETRIQ [Suspect]
     Active Substance: CABOZANTINIB S-MALATE
     Dosage: 120 MG, QD
     Route: 048
     Dates: start: 20171221
  4. COMETRIQ [Suspect]
     Active Substance: CABOZANTINIB S-MALATE
     Dosage: 140 MG, QD
     Route: 048
     Dates: start: 20151109, end: 201603

REACTIONS (10)
  - Skin exfoliation [Not Recovered/Not Resolved]
  - Gait disturbance [Unknown]
  - Burning sensation [Unknown]
  - Dry skin [Unknown]
  - Sunburn [Unknown]
  - Skin disorder [Unknown]
  - Nasopharyngitis [Unknown]
  - Tooth disorder [Not Recovered/Not Resolved]
  - Tooth loss [Unknown]
  - Muscular weakness [Unknown]
